FAERS Safety Report 4438524-3 (Version None)
Quarter: 2004Q3

REPORT INFORMATION
  Report Type: 
  Country: None (occurrence: None)
  Receive Date: 20040831
  Receipt Date: 20040820
  Transmission Date: 20050211
  Serious: Yes (Hospitalization)
  Sender: FDA-Public Use
  Company Number: MY-MERCK-0408MYS00013

PATIENT
  Age: 50 Year
  Sex: Male

DRUGS (3)
  1. AMOXICILLIN AND CLAVULANATE POTASSIUM [Concomitant]
     Indication: SEPSIS
     Route: 065
  2. CIPROFLOXACIN HYDROCHLORIDE [Concomitant]
     Indication: SEPSIS
     Route: 065
  3. VIOXX [Suspect]
     Indication: PAIN
     Route: 048
     Dates: start: 20040701, end: 20040730

REACTIONS (1)
  - MYOCARDIAL INFARCTION [None]
